FAERS Safety Report 19806350 (Version 2)
Quarter: 2021Q4

REPORT INFORMATION
  Report Type: Spontaneous
  Country: PL (occurrence: PL)
  Receive Date: 20210909
  Receipt Date: 20211012
  Transmission Date: 20220303
  Serious: Yes (Hospitalization, Other)
  Sender: FDA-Public Use
  Company Number: PL-KRKA-PL2021K11552LIT

PATIENT
  Age: 20 Month
  Sex: Male

DRUGS (1)
  1. AMOXICILLIN [Suspect]
     Active Substance: AMOXICILLIN
     Indication: Lyme disease
     Dosage: 750 MILLIGRAM, ONCE A DAY (250 MG, 3X PER DAY, 250 MG EVERY 8 HOURS)
     Route: 048

REACTIONS (3)
  - Behaviour disorder [Unknown]
  - Somnolence [Unknown]
  - Abnormal behaviour [Unknown]

NARRATIVE: CASE EVENT DATE: 20180601
